FAERS Safety Report 7422861-4 (Version None)
Quarter: 2011Q2

REPORT INFORMATION
  Report Type: 
  Country: None (occurrence: None)
  Receive Date: 20110419
  Receipt Date: 20101213
  Transmission Date: 20111010
  Serious: Yes (Death, Hospitalization)
  Sender: FDA-Public Use
  Company Number: JP-BAYER-201014969BYL

PATIENT
  Age: 81 Year
  Sex: Male
  Weight: 51 kg

DRUGS (18)
  1. PEGASYS [Concomitant]
     Indication: PROPHYLAXIS
     Dosage: DAILY DOSE 180 ?G
     Route: 058
     Dates: start: 20100518, end: 20100729
  2. URDENACIN [Concomitant]
     Indication: HEPATITIS
     Dosage: 100 MG, QD
     Route: 048
     Dates: end: 20100923
  3. NORVASC [Concomitant]
     Indication: HYPERTENSION
     Dosage: 5 MG, QD
     Route: 048
     Dates: end: 20100923
  4. MIYA BM [Concomitant]
     Indication: ABDOMINAL DISCOMFORT
     Dosage: 3 DF, BID
     Route: 048
     Dates: end: 20100923
  5. ZESULAN [Concomitant]
     Indication: PRURITUS
     Dosage: 3 MG, BID
     Route: 048
     Dates: end: 20100923
  6. NEXAVAR [Suspect]
     Indication: HEPATIC NEOPLASM MALIGNANT NON-RESECTABLE
     Dosage: 400 MG (DAILY DOSE), , ORAL
     Route: 048
     Dates: start: 20100811, end: 20100920
  7. CETIRIZINE HYDROCHLORIDE [Concomitant]
     Indication: PRURITUS
     Dosage: 10 MG, QD
     Route: 048
     Dates: end: 20100923
  8. TEPRENONE [Concomitant]
     Indication: GASTRITIS PROPHYLAXIS
     Dosage: 50 MG, TID
     Route: 048
     Dates: end: 20100923
  9. DIHYDROCODEINE PHOSPHATE [Concomitant]
     Dosage: 20 MG, QD
     Route: 048
     Dates: start: 20100922, end: 20100923
  10. BROTIZOLAM [Concomitant]
     Indication: INSOMNIA
     Dosage: 0.25 MG, QD
     Route: 048
     Dates: end: 20100923
  11. COPEGUS [Concomitant]
     Indication: PROPHYLAXIS
     Dosage: DAILY DOSE 600 MG
     Route: 048
     Dates: start: 20100518, end: 20100729
  12. OMERAP [Concomitant]
     Indication: PROPHYLAXIS AGAINST GASTROINTESTINAL ULCER
     Dosage: 10 MG, QD
     Route: 048
     Dates: end: 20100923
  13. CELECTOL [Concomitant]
     Indication: HYPERTENSION
     Dosage: 200 MG, BID
     Route: 048
     Dates: end: 20100923
  14. MICARDIS [Concomitant]
     Indication: HYPERTENSION
     Dosage: 20 MG, QD
     Route: 048
     Dates: end: 20100923
  15. AMINOVACT [Concomitant]
     Dosage: DAILY DOSE 3 DF
     Route: 048
     Dates: end: 20100923
  16. SPIRONOLACTONE [Concomitant]
     Indication: OEDEMA
     Dosage: 25 MG, QD
     Route: 048
     Dates: end: 20100923
  17. CELESTAMINE TAB [Concomitant]
     Indication: PRURITUS
     Dosage: 1 DF, BID
     Route: 048
     Dates: end: 20100923
  18. NOVORAPID [Concomitant]
     Indication: DIABETES MELLITUS
     Dosage: DAILY DOSE 32 U
     Route: 058
     Dates: end: 20100923

REACTIONS (3)
  - TUMOUR RUPTURE [None]
  - CARDIO-RESPIRATORY ARREST [None]
  - UPPER GASTROINTESTINAL HAEMORRHAGE [None]
